FAERS Safety Report 4971890-9 (Version None)
Quarter: 2006Q2

REPORT INFORMATION
  Report Type: 
  Country: None (occurrence: None)
  Receive Date: 20060413
  Receipt Date: 20050926
  Transmission Date: 20061013
  Serious: Yes (Death, Hospitalization, Disabling, Other)
  Sender: FDA-Public Use
  Company Number: US-MERCK-0509USA03860

PATIENT
  Age: 63 Year
  Sex: Female
  Weight: 55 kg

DRUGS (1)
  1. VIOXX [Suspect]
     Route: 048

REACTIONS (17)
  - ACUTE PULMONARY OEDEMA [None]
  - ARTERIOSCLEROSIS [None]
  - CAROTID ARTERY OCCLUSION [None]
  - CEREBELLAR INFARCTION [None]
  - CEREBROVASCULAR ACCIDENT [None]
  - DEATH [None]
  - HAEMATOCRIT DECREASED [None]
  - HAEMOGLOBIN DECREASED [None]
  - INTERVERTEBRAL DISC PROTRUSION [None]
  - LUNG DISORDER [None]
  - LUNG NEOPLASM MALIGNANT [None]
  - NON-SMALL CELL LUNG CANCER METASTATIC [None]
  - PANCYTOPENIA [None]
  - PERICARDIAL EFFUSION [None]
  - SPINAL COLUMN STENOSIS [None]
  - THROMBOCYTOPENIA [None]
  - VENTRICULAR HYPERTROPHY [None]
